FAERS Safety Report 4725689-9 (Version None)
Quarter: 2005Q3

REPORT INFORMATION
  Report Type: 
  Country: None (occurrence: None)
  Receive Date: 20050727
  Receipt Date: 20050712
  Transmission Date: 20060218
  Serious: Yes (Life-Threatening, Hospitalization)
  Sender: FDA-Public Use
  Company Number: GBWYE828713JUL05

PATIENT
  Sex: Female

DRUGS (1)
  1. ENBREL [Suspect]
     Indication: DRUG USE FOR UNKNOWN INDICATION
     Route: 058
     Dates: start: 20020701

REACTIONS (4)
  - GENERALISED OEDEMA [None]
  - LOWER RESPIRATORY TRACT INFECTION [None]
  - SEPSIS [None]
  - URINARY TRACT INFECTION [None]
